FAERS Safety Report 21473508 (Version 2)
Quarter: 2022Q4

REPORT INFORMATION
  Report Type: Spontaneous
  Country: JP (occurrence: JP)
  Receive Date: 20221018
  Receipt Date: 20221024
  Transmission Date: 20230113
  Serious: Yes (Hospitalization, Other)
  Sender: FDA-Public Use
  Company Number: JP-DSJP-DSJ-2022-136972

PATIENT
  Age: 77 Year
  Sex: Male

DRUGS (4)
  1. OLMESARTAN MEDOXOMIL [Suspect]
     Active Substance: OLMESARTAN MEDOXOMIL
     Indication: Hypertension
     Dosage: 5MG/DAY
     Route: 065
  2. METFORMIN HYDROCHLORIDE [Suspect]
     Active Substance: METFORMIN HYDROCHLORIDE
     Indication: Diabetes mellitus
     Dosage: 250MG/DAY
     Route: 048
  3. ALOGLIPTIN [ALOGLIPTIN BENZOATE] [Concomitant]
     Indication: Diabetes mellitus
     Dosage: 25MG/DAY
     Route: 065
  4. FEBUXOSTAT [Concomitant]
     Active Substance: FEBUXOSTAT
     Indication: Hyperuricaemia
     Dosage: 20MG/DAY
     Route: 065

REACTIONS (2)
  - Renal impairment [Recovering/Resolving]
  - Lactic acidosis [Recovering/Resolving]
